FAERS Safety Report 9217194 (Version 1)
Quarter: 2013Q2

REPORT INFORMATION
  Report Type: Spontaneous
  Country: IT (occurrence: IT)
  Receive Date: 20130408
  Receipt Date: 20130408
  Transmission Date: 20140414
  Serious: Yes (Hospitalization, Other)
  Sender: FDA-Public Use
  Company Number: IT-TEVA-393855ISR

PATIENT
  Age: 60 Year
  Sex: Female
  Weight: 60 kg

DRUGS (7)
  1. RIBAVIRIN [Suspect]
     Indication: HEPATIC CIRRHOSIS
     Dosage: 800 MILLIGRAM DAILY;
     Route: 048
  2. RIBAVIRIN [Suspect]
     Dosage: 600 MILLIGRAM DAILY;
     Route: 048
     Dates: end: 20120724
  3. PEGINTRON [Suspect]
     Indication: HEPATIC CIRRHOSIS
     Route: 058
     Dates: start: 20111028
  4. PEGINTRON [Suspect]
     Route: 058
     Dates: end: 20120724
  5. BOCEPREVIR [Suspect]
     Indication: HEPATIC CIRRHOSIS
     Dosage: 2400 MILLIGRAM DAILY;
     Route: 048
     Dates: start: 2011, end: 20120724
  6. EPREX [Concomitant]
     Indication: HEPATIC CIRRHOSIS
     Dates: start: 20111201
  7. EPREX [Concomitant]
     Dosage: EVERY 5 DAYS
     Dates: start: 20120207

REACTIONS (2)
  - Anaemia [Recovered/Resolved]
  - Staphylococcal infection [Unknown]
